FAERS Safety Report 11169376 (Version 2)
Quarter: 2015Q2

REPORT INFORMATION
  Report Type: Report from Study
  Country: DE (occurrence: DE)
  Receive Date: 20150605
  Receipt Date: 20150617
  Transmission Date: 20150821
  Serious: Yes (Hospitalization)
  Sender: FDA-Public Use
  Company Number: DE-ABBVIE-15K-062-1401060-00

PATIENT
  Age: 22 Year
  Sex: Female
  Weight: 65 kg

DRUGS (1)
  1. HUMIRA [Suspect]
     Active Substance: ADALIMUMAB
     Indication: CROHN^S DISEASE
     Route: 065
     Dates: start: 20140924

REACTIONS (3)
  - Anal fistula [Recovered/Resolved]
  - Anal fistula [Recovering/Resolving]
  - Anal fistula [Recovered/Resolved]

NARRATIVE: CASE EVENT DATE: 20141128
